FAERS Safety Report 6266429-4 (Version None)
Quarter: 2009Q3

REPORT INFORMATION
  Report Type: 
  Country: None (occurrence: None)
  Receive Date: 20090713
  Receipt Date: 20090706
  Transmission Date: 20100115
  Serious: Yes (Death)
  Sender: FDA-Public Use
  Company Number: AU-ASTRAZENECA-2008AP06227

PATIENT
  Sex: Male

DRUGS (1)
  1. NAROPIN [Suspect]
     Indication: NEUROMUSCULAR BLOCKADE
     Dosage: VOLUME 20ML DOSE UNKNOWN (STATED AS A MODEST AMOUNT)
     Dates: start: 20080801

REACTIONS (2)
  - BRADYCARDIA [None]
  - CARDIAC ARREST [None]
